FAERS Safety Report 24424323 (Version 2)
Quarter: 2024Q4

REPORT INFORMATION
  Report Type: Spontaneous
  Country: US (occurrence: US)
  Receive Date: 20241010
  Receipt Date: 20241015
  Transmission Date: 20250115
  Serious: No
  Sender: BRISTOL-MYERS SQUIBB COMPANY
  Company Number: US-BRISTOL-MYERS SQUIBB COMPANY-2024-158226

PATIENT
  Age: 69 Year
  Sex: Female

DRUGS (2)
  1. KRAZATI [Suspect]
     Active Substance: ADAGRASIB
     Indication: Lung neoplasm malignant
     Route: 048
     Dates: end: 2024
  2. KRAZATI [Suspect]
     Active Substance: ADAGRASIB
     Dosage: TAKE 3 TABLETS (600MG) BY MOUTH TWICE A DAY
     Route: 048

REACTIONS (1)
  - Off label use [Unknown]
